FAERS Safety Report 13475811 (Version 9)
Quarter: 2018Q2

REPORT INFORMATION
  Report Type: Report from Study
  Country: US (occurrence: US)
  Receive Date: 20170425
  Receipt Date: 20180402
  Transmission Date: 20180711
  Serious: Yes (Hospitalization)
  Sender: FDA-Public Use
  Company Number: PHHO2017US006701

PATIENT
  Age: 55 Year
  Sex: Female
  Weight: 81 kg

DRUGS (7)
  1. NITROFURANTOIN. [Concomitant]
     Active Substance: NITROFURANTOIN
     Indication: URINARY TRACT INFECTION
     Dosage: 100 MG, QD
     Route: 065
     Dates: start: 20170331
  2. KISQALI [Suspect]
     Active Substance: RIBOCICLIB
     Dosage: 250 MG (200 MG AND 50 MG), ONCE
     Route: 048
     Dates: start: 20170328, end: 20170411
  3. EXEMESTANE. [Suspect]
     Active Substance: EXEMESTANE
     Indication: BREAST CANCER METASTATIC
     Dosage: 25 MG, ONCE
     Route: 048
     Dates: start: 20170216, end: 20170407
  4. KISQALI [Suspect]
     Active Substance: RIBOCICLIB
     Indication: BREAST CANCER METASTATIC
     Dosage: 300 MG, QD
     Route: 048
     Dates: start: 20170216
  5. LEVAQUIN [Concomitant]
     Active Substance: LEVOFLOXACIN
     Indication: URINARY TRACT INFECTION
     Dosage: 750 MG, QD
     Route: 065
     Dates: start: 20170329, end: 20170330
  6. AFINITOR [Suspect]
     Active Substance: EVEROLIMUS
     Indication: BREAST CANCER METASTATIC
     Dosage: 2.5 MG, ONCE
     Route: 048
     Dates: start: 20170216, end: 20170407
  7. BACTRIM [Concomitant]
     Active Substance: SULFAMETHOXAZOLE\TRIMETHOPRIM
     Indication: URINARY TRACT INFECTION
     Dosage: 800-160 MG, QD
     Route: 065
     Dates: start: 20170330

REACTIONS (2)
  - Pneumatosis intestinalis [Recovered/Resolved]
  - Pyrexia [Recovered/Resolved]

NARRATIVE: CASE EVENT DATE: 20170408
